FAERS Safety Report 18687026 (Version 3)
Quarter: 2021Q1

REPORT INFORMATION
  Report Type: Spontaneous
  Country: DE (occurrence: DE)
  Receive Date: 20201231
  Receipt Date: 20210311
  Transmission Date: 20210419
  Serious: Yes (Hospitalization, Other)
  Sender: FDA-Public Use
  Company Number: DE-BRISTOL-MYERS SQUIBB COMPANY-BMS-2020-111271

PATIENT
  Age: 84 Year
  Sex: Male
  Weight: 92.7 kg

DRUGS (4)
  1. ELIQUIS [Suspect]
     Active Substance: APIXABAN
     Indication: CEREBROVASCULAR ACCIDENT PROPHYLAXIS
     Dosage: 5 MILLIGRAM, BID
     Route: 048
  2. TOREM [TORASEMIDE] [Concomitant]
     Active Substance: TORSEMIDE
     Indication: PRODUCT USED FOR UNKNOWN INDICATION
     Dosage: 5 MILLIGRAM
     Route: 065
  3. TAMSULOSIN [Concomitant]
     Active Substance: TAMSULOSIN
     Indication: PRODUCT USED FOR UNKNOWN INDICATION
     Dosage: 0.4 MILLIGRAM, QD
     Route: 065
  4. METOPROLOL. [Concomitant]
     Active Substance: METOPROLOL
     Indication: PRODUCT USED FOR UNKNOWN INDICATION
     Dosage: 100 MILLIGRAM, BID
     Route: 065

REACTIONS (16)
  - Cholelithiasis [Unknown]
  - Renal cyst [Unknown]
  - International normalised ratio increased [Unknown]
  - Anaemia [Unknown]
  - Colon adenoma [Unknown]
  - Bundle branch block left [Unknown]
  - Pleural calcification [Unknown]
  - Large intestinal haemorrhage [Unknown]
  - Hepatic steatosis [Unknown]
  - Osteoarthritis [Unknown]
  - Pleural fibrosis [Unknown]
  - Colon cancer [Unknown]
  - Diverticulum intestinal [Unknown]
  - Arteriosclerosis [Unknown]
  - Rectal polyp [Unknown]
  - Spinal osteoarthritis [Unknown]

NARRATIVE: CASE EVENT DATE: 202012
